FAERS Safety Report 6626145-3 (Version None)
Quarter: 2010Q1

REPORT INFORMATION
  Report Type: 
  Country: None (occurrence: None)
  Receive Date: 20100310
  Receipt Date: 20100225
  Transmission Date: 20100710
  Serious: Yes (Disabling)
  Sender: FDA-Public Use
  Company Number: PHHY2010ES10977

PATIENT
  Age: 5 Year
  Sex: Female

DRUGS (2)
  1. TRILEPTAL [Suspect]
     Indication: TEMPORAL LOBE EPILEPSY
  2. DEPAKENE [Concomitant]
     Indication: EPILEPSY

REACTIONS (4)
  - ASTIGMATISM [None]
  - EPILEPSY [None]
  - HYPERMETROPIA [None]
  - VISUAL ACUITY REDUCED [None]
